FAERS Safety Report 12862586 (Version 6)
Quarter: 2017Q2

REPORT INFORMATION
  Report Type: Report from Study
  Country: IT (occurrence: IT)
  Receive Date: 20161019
  Receipt Date: 20170524
  Transmission Date: 20170830
  Serious: Yes (Other)
  Sender: FDA-Public Use
  Company Number: IT-OTSUKA-2016_022804

PATIENT
  Age: 45 Year
  Sex: Female
  Weight: 51 kg

DRUGS (14)
  1. TOLVAPTAN [Suspect]
     Active Substance: TOLVAPTAN
     Dosage: PLACEBO RUN IN (1 TABLET IN MORNING)
     Route: 048
     Dates: start: 20160119, end: 20160202
  2. TOLVAPTAN [Suspect]
     Active Substance: TOLVAPTAN
     Dosage: 30 MG, QD (1 TAB OF 30 MG IN EVENING)
     Route: 048
     Dates: start: 20160210, end: 20160213
  3. TOLVAPTAN [Suspect]
     Active Substance: TOLVAPTAN
     Dosage: 45 MG, QD (3 TABS OF 15 MG IN MORNING)
     Route: 048
     Dates: start: 20160207, end: 20160209
  4. TOLVAPTAN [Suspect]
     Active Substance: TOLVAPTAN
     Dosage: 60 MG, QD (2 TABS OF 30 MG IN MORNING)
     Route: 048
     Dates: start: 20160217, end: 20160405
  5. TOLVAPTAN [Suspect]
     Active Substance: TOLVAPTAN
     Dosage: 60 MG, QD (2 TABS OF 30 MG IN MORNING)
     Route: 048
     Dates: start: 20160210, end: 20160213
  6. TOLVAPTAN [Suspect]
     Active Substance: TOLVAPTAN
     Dosage: PLACEBO RUN IN (1 TABLET IN EVENING)
     Route: 048
     Dates: start: 20160119, end: 20160202
  7. TOLVAPTAN [Suspect]
     Active Substance: TOLVAPTAN
     Dosage: 30 MG, QD (1 TAB OF 30 MG IN EVENING)
     Route: 048
     Dates: start: 20160214, end: 20160216
  8. TOLVAPTAN [Suspect]
     Active Substance: TOLVAPTAN
     Dosage: 15 MG, QD (1 TAB OF 15 MG IN EVENING)
     Route: 048
     Dates: start: 20160203, end: 20160206
  9. TOLVAPTAN [Suspect]
     Active Substance: TOLVAPTAN
     Dosage: 30 MG, QD (1 TAB OF 30 MG IN EVENING)
     Route: 048
     Dates: start: 20160217, end: 20160405
  10. TOLVAPTAN [Suspect]
     Active Substance: TOLVAPTAN
     Dosage: 15 MG, QD (1 TAB OF 15 MG IN EVENING)
     Route: 048
     Dates: start: 20160406, end: 20160729
  11. TOLVAPTAN [Suspect]
     Active Substance: TOLVAPTAN
     Dosage: 30 MG, QD (2 TABS OF 15 MG IN MORNING)
     Route: 048
     Dates: start: 20160203, end: 20160206
  12. TOLVAPTAN [Suspect]
     Active Substance: TOLVAPTAN
     Indication: CONGENITAL CYSTIC KIDNEY DISEASE
     Dosage: 45 MG, QD (3 TABS OF 15 MG IN MORNING)
     Route: 048
     Dates: start: 20160406, end: 20160729
  13. TOLVAPTAN [Suspect]
     Active Substance: TOLVAPTAN
     Dosage: 15 MG, QD (1 TAB OF 15 MG IN EVENING)
     Route: 048
     Dates: start: 20160207, end: 20160209
  14. TOLVAPTAN [Suspect]
     Active Substance: TOLVAPTAN
     Dosage: 90 MG, QD (3 TABS OF 30 MG IN MORNING)
     Route: 048
     Dates: start: 20160214, end: 20160216

REACTIONS (1)
  - Transaminases increased [Recovered/Resolved]

NARRATIVE: CASE EVENT DATE: 20160729
